FAERS Safety Report 22109153 (Version 1)
Quarter: 2023Q1

REPORT INFORMATION
  Report Type: Spontaneous
  Country: NO (occurrence: NO)
  Receive Date: 20230317
  Receipt Date: 20230317
  Transmission Date: 20230418
  Serious: Yes (Life-Threatening, Hospitalization, Other)
  Sender: FDA-Public Use
  Company Number: NO-PFIZER INC-202300111089

PATIENT
  Age: 66 Year
  Sex: Female

DRUGS (1)
  1. FRAGMIN [Suspect]
     Active Substance: DALTEPARIN SODIUM
     Indication: Spondylolisthesis
     Dosage: UNK

REACTIONS (11)
  - Off label use [Unknown]
  - Thrombotic thrombocytopenic purpura [Unknown]
  - Cerebral infarction [Unknown]
  - Coronary artery embolism [Unknown]
  - Transient ischaemic attack [Unknown]
  - Speech disorder [Unknown]
  - Facial paralysis [Unknown]
  - Thrombocytopenia [Unknown]
  - Haemolytic anaemia [Unknown]
  - Cerebrovascular accident [Unknown]
  - Heparin-induced thrombocytopenia [Unknown]

NARRATIVE: CASE EVENT DATE: 20210101
